FAERS Safety Report 21063916 (Version 1)
Quarter: 2022Q3

REPORT INFORMATION
  Report Type: Report from Study
  Country: US (occurrence: US)
  Receive Date: 20220711
  Receipt Date: 20220711
  Transmission Date: 20221027
  Serious: Yes (Other)
  Sender: FDA-Public Use
  Company Number: US-MYLANLABS-2022M1050466

PATIENT
  Age: 59 Year
  Sex: Female

DRUGS (2)
  1. EPIPEN [Suspect]
     Active Substance: EPINEPHRINE
     Indication: Rash
     Dosage: UNK
     Route: 065
     Dates: start: 20220623
  2. CORTROPHIN [Concomitant]
     Dosage: 80 UNITS/ML
     Route: 065
     Dates: start: 20220622

REACTIONS (3)
  - Injury associated with device [Unknown]
  - Device failure [Unknown]
  - Off label use [Unknown]

NARRATIVE: CASE EVENT DATE: 20220623
